FAERS Safety Report 5812501-X (Version None)
Quarter: 2008Q3

REPORT INFORMATION
  Report Type: 
  Country: None (occurrence: None)
  Receive Date: 20080717
  Receipt Date: 20080715
  Transmission Date: 20090109
  Serious: Yes (Other)
  Sender: FDA-Public Use
  Company Number: GB-RANBAXY-2008RR-16150

PATIENT

DRUGS (4)
  1. SIMVASTATIN [Suspect]
     Indication: BLOOD CHOLESTEROL
     Dosage: 40 G, QD
     Route: 048
     Dates: start: 20080414, end: 20080416
  2. LEVOTHYROXINE SODIUM [Concomitant]
     Dosage: 0.05 MG, QD
  3. ACTONEL [Concomitant]
     Dosage: UNK
  4. ADCAL-D3 [Concomitant]

REACTIONS (3)
  - HEADACHE [None]
  - HYPERTENSION [None]
  - NECK PAIN [None]
